FAERS Safety Report 6030757-8 (Version None)
Quarter: 2009Q1

REPORT INFORMATION
  Report Type: 
  Country: None (occurrence: None)
  Receive Date: 20090107
  Receipt Date: 20081230
  Transmission Date: 20090719
  Serious: Yes (Hospitalization)
  Sender: FDA-Public Use
  Company Number: US-GENENTECH-274796

PATIENT
  Age: 62 Year
  Sex: Female

DRUGS (2)
  1. BEVACIZUMAB [Suspect]
     Indication: BREAST CANCER
     Dosage: 15 MG/KG, Q21D
     Route: 042
     Dates: start: 20081205
  2. LETROZOLE [Suspect]
     Indication: BREAST CANCER
     Dosage: 2.5 MG, QD
     Route: 048
     Dates: start: 20081205

REACTIONS (11)
  - BLOOD CULTURE POSITIVE [None]
  - CARDIAC FAILURE CONGESTIVE [None]
  - DEHYDRATION [None]
  - HAEMODIALYSIS [None]
  - HYPERKALAEMIA [None]
  - HYPOTENSION [None]
  - HYPOVOLAEMIA [None]
  - MULTIPLE SCLEROSIS [None]
  - PLEURAL EFFUSION [None]
  - PNEUMONIA [None]
  - RENAL FAILURE [None]
